FAERS Safety Report 9479542 (Version 5)
Quarter: 2013Q3

REPORT INFORMATION
  Report Type: Spontaneous
  Country: JP (occurrence: JP)
  Receive Date: 20130827
  Receipt Date: 20130924
  Transmission Date: 20140515
  Serious: Yes (Hospitalization, Other)
  Sender: FDA-Public Use
  Company Number: JP-B.I. PHARMACEUTICALS,INC./RIDGEFIELD-2013-BI-26490NB

PATIENT
  Age: 77 Year
  Sex: Male
  Weight: 52 kg

DRUGS (9)
  1. PRAZAXA [Suspect]
     Indication: ATRIAL FIBRILLATION
     Dosage: 220 MG
     Route: 048
     Dates: start: 20120319, end: 20130821
  2. TAKEPRON [Concomitant]
     Dosage: 15 MG
     Route: 065
     Dates: start: 20120319
  3. FLUITRAN [Concomitant]
     Dosage: 0.5 MG
     Route: 065
     Dates: start: 20120319
  4. ALDACTONE A [Concomitant]
     Dosage: 25 MG
     Route: 065
     Dates: start: 20120319
  5. MAGMITT [Concomitant]
     Dosage: 990 MG
     Route: 065
     Dates: start: 20120319
  6. POSTERISAN [Concomitant]
     Route: 065
     Dates: start: 20120319
  7. LOXONIN [Concomitant]
     Route: 065
     Dates: start: 20120601
  8. BUFFERIN 81MG [Concomitant]
     Dosage: 81 MG
     Route: 065
     Dates: start: 20120618
  9. TENORMIN [Concomitant]
     Dosage: DAILY DOSE:0.5DF
     Route: 065
     Dates: start: 20120618

REACTIONS (3)
  - Dehydration [Unknown]
  - Lacunar infarction [Unknown]
  - Renal impairment [Not Recovered/Not Resolved]
